FAERS Safety Report 25921016 (Version 2)
Quarter: 2025Q4

REPORT INFORMATION
  Report Type: Spontaneous
  Country: EU (occurrence: EU)
  Receive Date: 20251014
  Receipt Date: 20251120
  Transmission Date: 20260119
  Serious: Yes (Other)
  Sender: VERTEX
  Company Number: None

PATIENT
  Age: 24 Year
  Sex: Female
  Weight: 48 kg

DRUGS (2)
  1. ELEXACAFTOR\IVACAFTOR\TEZACAFTOR [Suspect]
     Active Substance: ELEXACAFTOR\IVACAFTOR\TEZACAFTOR
     Indication: Cystic fibrosis
     Dosage: 75 MG IVA /50 MG TEZA/100 MG ELEXA, 1 DOSAGE FORM
     Route: 048
     Dates: start: 20230115
  2. KALYDECO [Suspect]
     Active Substance: IVACAFTOR
     Indication: Cystic fibrosis
     Dosage: 2X 150 MG/DAY
     Route: 048
     Dates: start: 20230115

REACTIONS (2)
  - Anxiety [Not Recovered/Not Resolved]
  - Depression [Not Recovered/Not Resolved]

NARRATIVE: CASE EVENT DATE: 20250930
